FAERS Safety Report 12351844 (Version 1)
Quarter: 2016Q2

REPORT INFORMATION
  Report Type: Spontaneous
  Country: JP (occurrence: JP)
  Receive Date: 20160510
  Receipt Date: 20160510
  Transmission Date: 20160815
  Serious: Yes (Hospitalization, Other)
  Sender: FDA-Public Use
  Company Number: JP-SA-2016SA091184

PATIENT
  Age: 45 Year
  Sex: Male
  Weight: 45.2 kg

DRUGS (19)
  1. AMBRISENTAN [Suspect]
     Active Substance: AMBRISENTAN
     Indication: PULMONARY ARTERIAL HYPERTENSION
     Route: 048
     Dates: start: 20120125
  2. DOBUTAMINE [Suspect]
     Active Substance: DOBUTAMINE\DOBUTAMINE HYDROCHLORIDE
     Route: 041
     Dates: end: 20120130
  3. FERROUS SULFATE. [Concomitant]
     Active Substance: FERROUS SULFATE
     Route: 065
     Dates: start: 20120213, end: 20140104
  4. CARELOAD LA [Concomitant]
     Active Substance: BERAPROST SODIUM
     Route: 065
  5. DIART [Concomitant]
     Active Substance: AZOSEMIDE
     Route: 065
     Dates: start: 20120206
  6. AMBRISENTAN [Suspect]
     Active Substance: AMBRISENTAN
     Indication: PULMONARY ARTERIAL HYPERTENSION
     Route: 048
     Dates: start: 20120107, end: 20120124
  7. DORNER [Concomitant]
     Active Substance: BERAPROST SODIUM
     Route: 065
  8. FLUITRAN [Concomitant]
     Active Substance: TRICHLORMETHIAZIDE
     Route: 065
  9. DOPAMINE [Concomitant]
     Active Substance: DOPAMINE\DOPAMINE HYDROCHLORIDE
     Route: 065
     Dates: start: 20120130, end: 20120301
  10. ADCIRCA [Concomitant]
     Active Substance: TADALAFIL
     Route: 065
  11. HALFDIGOXIN [Concomitant]
     Active Substance: DIGOXIN
     Route: 065
     Dates: start: 20120117
  12. LUPRAC [Concomitant]
     Active Substance: TORSEMIDE
     Route: 065
  13. OXYGEN. [Concomitant]
     Active Substance: OXYGEN
     Route: 065
  14. LASIX [Suspect]
     Active Substance: FUROSEMIDE
     Route: 048
     Dates: start: 20120118, end: 20120206
  15. MILRINONE [Concomitant]
     Active Substance: MILRINONE
     Route: 065
     Dates: start: 20120203, end: 20120306
  16. FLOLAN [Suspect]
     Active Substance: EPOPROSTENOL SODIUM
     Indication: PULMONARY ARTERIAL HYPERTENSION
     Route: 065
  17. RABEPRAZOLE SODIUM. [Concomitant]
     Active Substance: RABEPRAZOLE SODIUM
     Route: 065
  18. PIMOBENDAN [Concomitant]
     Active Substance: PIMOBENDAN
     Route: 065
  19. SPIRONOLACTONE. [Concomitant]
     Active Substance: SPIRONOLACTONE
     Route: 065

REACTIONS (3)
  - Dyslipidaemia [Recovered/Resolved]
  - Eosinophil count increased [Recovered/Resolved]
  - Device related infection [Recovered/Resolved]

NARRATIVE: CASE EVENT DATE: 20120111
